FAERS Safety Report 18114395 (Version 1)
Quarter: 2020Q3

REPORT INFORMATION
  Report Type: Spontaneous
  Country: US (occurrence: US)
  Receive Date: 20200805
  Receipt Date: 20200805
  Transmission Date: 20201103
  Serious: No
  Sender: FDA-Public Use
  Company Number: US-009507513-2007USA012165

PATIENT
  Age: 24 Year
  Sex: Male

DRUGS (3)
  1. REMERON [Suspect]
     Active Substance: MIRTAZAPINE
     Indication: PROGRESSIVE MULTIFOCAL LEUKOENCEPHALOPATHY
     Dosage: 30 MILLIGRAM, QD
     Dates: start: 20170807
  2. MEFLOQUINE [Concomitant]
     Active Substance: MEFLOQUINE
     Indication: PROGRESSIVE MULTIFOCAL LEUKOENCEPHALOPATHY
     Dosage: 250 MILLIGRAM, QD
  3. MEFLOQUINE [Concomitant]
     Active Substance: MEFLOQUINE
     Dosage: 250 MILLIGRAM, QW

REACTIONS (1)
  - Product use in unapproved indication [Unknown]
